FAERS Safety Report 14055600 (Version 2)
Quarter: 2017Q4

REPORT INFORMATION
  Report Type: Spontaneous
  Country: US (occurrence: US)
  Receive Date: 20171006
  Receipt Date: 20171017
  Transmission Date: 20180321
  Serious: Yes (Hospitalization)
  Sender: FDA-Public Use
  Company Number: US-AUROBINDO-AUR-APL-2017-41321

PATIENT
  Age: 67 Year
  Sex: Female

DRUGS (4)
  1. HYDROCODONE [Suspect]
     Active Substance: HYDROCODONE
     Indication: PAIN
     Route: 065
  2. OXYCODONE [Suspect]
     Active Substance: OXYCODONE
     Indication: PAIN
     Route: 065
  3. FENTANYL. [Suspect]
     Active Substance: FENTANYL
     Indication: PRODUCT USED FOR UNKNOWN INDICATION
     Dosage: 50 MCG/H, UNK
     Dates: start: 2009
  4. MORPHINE [Suspect]
     Active Substance: MORPHINE
     Indication: PAIN
     Dosage: 360 MG, ONCE A DAY
     Route: 040

REACTIONS (11)
  - Hypoaesthesia [Unknown]
  - Small intestinal obstruction [Unknown]
  - Sensory disturbance [Unknown]
  - Lumbosacral plexopathy [Unknown]
  - Anxiety [Unknown]
  - Pain [Recovered/Resolved]
  - Lumbosacral radiculopathy [Unknown]
  - Paraesthesia [Unknown]
  - Bursitis [Unknown]
  - Pneumonia [Unknown]
  - Constipation [Unknown]
